FAERS Safety Report 17776230 (Version 37)
Quarter: 2025Q1

REPORT INFORMATION
  Report Type: Report from Study
  Country: US (occurrence: US)
  Receive Date: 20200513
  Receipt Date: 20250318
  Transmission Date: 20250408
  Serious: Yes (Hospitalization, Other)
  Sender: TAKEDA
  Company Number: US-SHIRE-US202016091

PATIENT
  Age: 69 Year
  Sex: Male
  Weight: 71 kg

DRUGS (26)
  1. HUMAN IMMUNOGLOBULIN G [Suspect]
     Active Substance: HUMAN IMMUNOGLOBULIN G
     Indication: Immunodeficiency common variable
     Dosage: 40 GRAM, Q2WEEKS
     Dates: start: 20200504
  2. HUMAN IMMUNOGLOBULIN G [Suspect]
     Active Substance: HUMAN IMMUNOGLOBULIN G
     Dosage: 80 GRAM, Q4WEEKS
  3. ACETAMINOPHEN [Concomitant]
     Active Substance: ACETAMINOPHEN
  4. EPINEPHRINE [Concomitant]
     Active Substance: EPINEPHRINE
  5. MELOXICAM [Concomitant]
     Active Substance: MELOXICAM
  6. MIRALAX [Concomitant]
     Active Substance: POLYETHYLENE GLYCOL 3350
  7. ADVIL [Concomitant]
     Active Substance: IBUPROFEN
  8. SODIUM CHLORIDE [Concomitant]
     Active Substance: SODIUM CHLORIDE
  9. Citracal + D3 [Concomitant]
  10. SALONPAS PAIN RELIEF [Concomitant]
     Active Substance: MENTHOL\METHYL SALICYLATE
  11. LEVOTHYROXINE SODIUM [Concomitant]
     Active Substance: LEVOTHYROXINE SODIUM
  12. TRAMADOL HCL [Concomitant]
     Active Substance: TRAMADOL HYDROCHLORIDE
  13. AMOXICILLIN\CLAVULANIC ACID [Concomitant]
     Active Substance: AMOXICILLIN\CLAVULANIC ACID
  14. HYDROCORTISONE [Concomitant]
     Active Substance: HYDROCORTISONE
  15. METFORMIN HYDROCHLORIDE [Concomitant]
     Active Substance: METFORMIN HYDROCHLORIDE
  16. SIMVASTATIN [Concomitant]
     Active Substance: SIMVASTATIN
  17. ASPIRIN [Concomitant]
     Active Substance: ASPIRIN
  18. VITAMIN D3 [Concomitant]
     Active Substance: CHOLECALCIFEROL
  19. DIPHENHYDRAMINE HYDROCHLORIDE [Concomitant]
     Active Substance: DIPHENHYDRAMINE HYDROCHLORIDE
  20. METHYLPREDNISOLONE [Concomitant]
     Active Substance: METHYLPREDNISOLONE
  21. COZAAR [Concomitant]
     Active Substance: LOSARTAN POTASSIUM
  22. BIOTIN [Concomitant]
     Active Substance: BIOTIN
  23. CEFIXIME [Concomitant]
     Active Substance: CEFIXIME
  24. GABAPENTIN [Concomitant]
     Active Substance: GABAPENTIN
  25. OXYCODONE HYDROCHLORIDE [Concomitant]
     Active Substance: OXYCODONE HYDROCHLORIDE
  26. DIPHENHYDRAMINE [Concomitant]
     Active Substance: DIPHENHYDRAMINE

REACTIONS (23)
  - Accident [Unknown]
  - Neck injury [Unknown]
  - Cervical vertebral fracture [Unknown]
  - Infusion related reaction [Unknown]
  - COVID-19 [Unknown]
  - Gastrointestinal viral infection [Unknown]
  - Poor quality sleep [Unknown]
  - Therapeutic response shortened [Unknown]
  - Neck pain [Recovering/Resolving]
  - Sinus congestion [Unknown]
  - Respiratory disorder [Unknown]
  - Throat irritation [Unknown]
  - Inappropriate schedule of product administration [Unknown]
  - Peripheral coldness [Unknown]
  - Oropharyngeal pain [Unknown]
  - Back pain [Unknown]
  - Pain [Recovering/Resolving]
  - Rash [Unknown]
  - Pain in extremity [Unknown]
  - Diarrhoea [Recovered/Resolved]
  - Arthralgia [Recovering/Resolving]
  - Headache [Recovered/Resolved]
  - Fatigue [Recovered/Resolved]

NARRATIVE: CASE EVENT DATE: 20230401
